FAERS Safety Report 10376011 (Version 2)
Quarter: 2014Q4

REPORT INFORMATION
  Report Type: Spontaneous
  Country: FR (occurrence: FR)
  Receive Date: 20140811
  Receipt Date: 20141031
  Transmission Date: 20150528
  Serious: Yes (Other)
  Sender: FDA-Public Use
  Company Number: FR-TEVA-500562ISR

PATIENT
  Sex: Female

DRUGS (1)
  1. FUROSEMIDE TEVA 500MG [Suspect]
     Active Substance: FUROSEMIDE
     Dosage: 0.5 TABLET IN THE MORNING AND 0.25 TABLET AT MIDDAY
     Dates: start: 2014, end: 2014

REACTIONS (6)
  - Drug ineffective [Unknown]
  - Hospitalisation [Unknown]
  - Urinary retention [Unknown]
  - Weight increased [Unknown]
  - Abdominal distension [Unknown]
  - Product substitution issue [Unknown]

NARRATIVE: CASE EVENT DATE: 2014
